FAERS Safety Report 16665026 (Version 1)
Quarter: 2019Q3

REPORT INFORMATION
  Report Type: Spontaneous
  Country: US (occurrence: US)
  Receive Date: 20190803
  Receipt Date: 20190803
  Transmission Date: 20191004
  Serious: Yes (Other)
  Sender: FDA-Public Use
  Company Number: US-ACCORD-071029

PATIENT
  Age: 50 Year
  Sex: Female
  Weight: 89.81 kg

DRUGS (20)
  1. IRON [Concomitant]
     Active Substance: IRON
     Dates: start: 200901
  2. FLUOROURACIL. [Suspect]
     Active Substance: FLUOROURACIL
     Indication: BREAST CANCER
  3. DOCETAXEL ACCORD [Suspect]
     Active Substance: DOCETAXEL
     Indication: BREAST CANCER
     Dates: start: 20110721, end: 20110921
  4. ASTELIN [Concomitant]
     Active Substance: AZELASTINE HYDROCHLORIDE
     Dates: start: 201001
  5. NEOSAR [Suspect]
     Active Substance: CYCLOPHOSPHAMIDE
     Indication: BREAST CANCER
  6. HYDROCHLOROTHIAZIDE. [Concomitant]
     Active Substance: HYDROCHLOROTHIAZIDE
     Dates: start: 20080122
  7. LIDOCAINE. [Concomitant]
     Active Substance: LIDOCAINE
     Dates: start: 201101
  8. FLUOXETINE [Concomitant]
     Active Substance: FLUOXETINE HYDROCHLORIDE
  9. HYDROCODONE [Concomitant]
     Active Substance: HYDROCODONE
  10. DOXORUBICIN [Suspect]
     Active Substance: DOXORUBICIN
     Indication: BREAST CANCER
  11. MELOXICAM. [Concomitant]
     Active Substance: MELOXICAM
     Dates: start: 20090101
  12. WARFARIN [Concomitant]
     Active Substance: WARFARIN
  13. LISINOPRIL. [Concomitant]
     Active Substance: LISINOPRIL
     Dates: start: 20100611
  14. SALONPAS PAIN RELIEF [Concomitant]
     Active Substance: MENTHOL\METHYL SALICYLATE
     Dates: start: 201101
  15. DICLOFENAC [Concomitant]
     Active Substance: DICLOFENAC
     Dates: start: 201101
  16. METOPROLOL. [Concomitant]
     Active Substance: METOPROLOL
     Dates: start: 200301
  17. IPRATROPIUM [Concomitant]
     Active Substance: IPRATROPIUM
     Dates: start: 201001
  18. FLUTICASONE. [Concomitant]
     Active Substance: FLUTICASONE
     Dates: start: 200501
  19. PROMETHAZINE [Concomitant]
     Active Substance: PROMETHAZINE HYDROCHLORIDE
  20. LANSOPRAZOLE. [Concomitant]
     Active Substance: LANSOPRAZOLE

REACTIONS (1)
  - Alopecia [Not Recovered/Not Resolved]

NARRATIVE: CASE EVENT DATE: 201203
